FAERS Safety Report 14646488 (Version 1)
Quarter: 2018Q1

REPORT INFORMATION
  Report Type: Spontaneous
  Country: FR (occurrence: FR)
  Receive Date: 20180316
  Receipt Date: 20180316
  Transmission Date: 20180509
  Serious: Yes (Other)
  Sender: FDA-Public Use
  Company Number: FR-MERCK KGAA-2043887

PATIENT
  Age: 67 Year
  Sex: Female

DRUGS (1)
  1. NOVOTHYROX [Suspect]
     Active Substance: LEVOTHYROXINE SODIUM
     Indication: THYROID DISORDER
     Dates: start: 201708

REACTIONS (21)
  - Back pain [None]
  - Alopecia [None]
  - Dizziness [None]
  - Tremor [None]
  - General physical health deterioration [None]
  - Pain in extremity [None]
  - Depressed mood [None]
  - Muscle disorder [None]
  - Loss of personal independence in daily activities [None]
  - Asthenia [None]
  - Urinary hesitation [None]
  - Pollakiuria [None]
  - Memory impairment [None]
  - Weight decreased [None]
  - Pain [None]
  - Decreased appetite [None]
  - Gastrointestinal pain [None]
  - Fatigue [None]
  - Blood thyroid stimulating hormone decreased [None]
  - Social avoidant behaviour [None]
  - Nervousness [None]

NARRATIVE: CASE EVENT DATE: 20170929
